FAERS Safety Report 4742776-X (Version None)
Quarter: 2005Q3

REPORT INFORMATION
  Report Type: 
  Country: None (occurrence: None)
  Receive Date: 20050810
  Receipt Date: 20050810
  Transmission Date: 20060218
  Serious: Yes (Other)
  Sender: FDA-Public Use
  Company Number: None

PATIENT
  Sex: Female
  Weight: 77.1115 kg

DRUGS (4)
  1. AZATHIOPRINE [Suspect]
     Indication: MYOSITIS
     Dosage: 3 TABLETS   DAY  ORAL
     Route: 048
     Dates: start: 20050101, end: 20050511
  2. ALTACE [Concomitant]
  3. PREDISONE [Concomitant]
  4. ZOLOFT [Concomitant]

REACTIONS (4)
  - CONDITION AGGRAVATED [None]
  - DRUG EFFECT DECREASED [None]
  - MYOSITIS [None]
  - THERAPEUTIC RESPONSE UNEXPECTED WITH DRUG SUBSTITUTION [None]
